FAERS Safety Report 13418923 (Version 1)
Quarter: 2017Q2

REPORT INFORMATION
  Report Type: Spontaneous
  Country: FR (occurrence: FR)
  Receive Date: 20170407
  Receipt Date: 20170407
  Transmission Date: 20170830
  Serious: Yes (Hospitalization)
  Sender: FDA-Public Use
  Company Number: FR-ROCHE-1916556

PATIENT
  Age: 50 Year
  Sex: Female

DRUGS (11)
  1. HERCEPTIN [Suspect]
     Active Substance: TRASTUZUMAB
     Indication: BREAST CANCER
     Route: 065
     Dates: start: 201610, end: 20161209
  2. PERJETA [Suspect]
     Active Substance: PERTUZUMAB
     Indication: BREAST CANCER
     Route: 065
     Dates: start: 201610, end: 20161209
  3. TAXOTERE [Suspect]
     Active Substance: DOCETAXEL
     Indication: BREAST CANCER
     Route: 065
     Dates: start: 201610, end: 20161209
  4. APROVEL [Concomitant]
     Active Substance: IRBESARTAN
     Route: 048
  5. KARDEGIC [Suspect]
     Active Substance: ASPIRIN LYSINE
     Indication: CEREBROVASCULAR ACCIDENT
     Route: 048
     Dates: end: 20170128
  6. DIFFU K [Concomitant]
     Active Substance: POTASSIUM CHLORIDE
     Route: 048
  7. APIDRA [Suspect]
     Active Substance: INSULIN GLULISINE
     Indication: PRODUCT USED FOR UNKNOWN INDICATION
     Route: 065
  8. LEVEMIR [Suspect]
     Active Substance: INSULIN DETEMIR
     Indication: PRODUCT USED FOR UNKNOWN INDICATION
     Route: 065
  9. SPECIAFOLDINE [Concomitant]
     Active Substance: FOLIC ACID
     Route: 048
  10. AMLOR [Concomitant]
     Active Substance: AMLODIPINE BESYLATE
     Route: 048
  11. TAHOR [Concomitant]
     Active Substance: ATORVASTATIN CALCIUM
     Route: 048

REACTIONS (2)
  - Duodenal ulcer haemorrhage [Recovering/Resolving]
  - Duodenal ulcer perforation [Recovering/Resolving]

NARRATIVE: CASE EVENT DATE: 20170127
